FAERS Safety Report 7952794-6 (Version None)
Quarter: 2011Q4

REPORT INFORMATION
  Report Type: 
  Country: None (occurrence: None)
  Receive Date: 20111201
  Receipt Date: 20111121
  Transmission Date: 20120403
  Serious: Yes (Hospitalization, Disabling, Other)
  Sender: FDA-Public Use
  Company Number: BR-ABBOTT-11P-020-0702103-00

PATIENT
  Sex: Female
  Weight: 100 kg

DRUGS (9)
  1. ESOMEPRAZOLE MAGNESIUM [Concomitant]
     Indication: GASTRITIS
     Route: 048
  2. CIPROFIBRATE [Concomitant]
     Indication: BLOOD TRIGLYCERIDES INCREASED
     Route: 048
  3. DOMPERIDONE [Concomitant]
     Indication: GASTRITIS
     Route: 048
  4. ATENOLOL [Concomitant]
     Indication: HYPERTENSION
     Route: 048
  5. ZILIFE [Concomitant]
     Indication: DIARRHOEA
     Route: 048
  6. OLMESARTAN MEDOXOMIL [Concomitant]
     Indication: HYPERTENSION
     Route: 048
  7. METFORMIN HCL [Suspect]
     Indication: BLOOD GLUCOSE
     Route: 048
     Dates: start: 20101201, end: 20110101
  8. AMLODIPINE [Concomitant]
     Indication: HYPERTENSION
     Route: 048
  9. HUMIRA [Suspect]
     Indication: RHEUMATOID ARTHRITIS
     Route: 058
     Dates: start: 20030301

REACTIONS (27)
  - FALL [None]
  - OSTEOPOROSIS [None]
  - RENAL DISORDER [None]
  - MUSCULOSKELETAL STIFFNESS [None]
  - RHEUMATOID ARTHRITIS [None]
  - ARTHRITIS [None]
  - ERYTHEMA [None]
  - CHILLS [None]
  - MUSCULOSKELETAL PAIN [None]
  - DIARRHOEA [None]
  - ABDOMINAL PAIN UPPER [None]
  - DRUG HYPERSENSITIVITY [None]
  - ILL-DEFINED DISORDER [None]
  - JOINT ARTHROPLASTY [None]
  - WHEELCHAIR USER [None]
  - DIABETES MELLITUS [None]
  - BLOOD TRIGLYCERIDES ABNORMAL [None]
  - PAIN IN EXTREMITY [None]
  - VOMITING [None]
  - MULTI-VITAMIN DEFICIENCY [None]
  - CARDIOVASCULAR DISORDER [None]
  - FEELING HOT [None]
  - HELICOBACTER GASTRITIS [None]
  - THYROID FUNCTION TEST ABNORMAL [None]
  - BLOOD CHOLESTEROL ABNORMAL [None]
  - DEVICE BREAKAGE [None]
  - TIBIA FRACTURE [None]
